FAERS Safety Report 11645628 (Version 1)
Quarter: 2015Q4

REPORT INFORMATION
  Report Type: Report from Study
  Country: US (occurrence: US)
  Receive Date: 20151020
  Receipt Date: 20151020
  Transmission Date: 20160304
  Serious: Yes (Death)
  Sender: FDA-Public Use
  Company Number: US-ASTRAZENECA-2015SF00703

PATIENT
  Age: 29537 Day
  Sex: Male

DRUGS (11)
  1. METFORMIN [Concomitant]
     Active Substance: METFORMIN HYDROCHLORIDE
  2. LISINOPRIL. [Suspect]
     Active Substance: LISINOPRIL
     Route: 048
  3. ELIQUIS [Concomitant]
     Active Substance: APIXABAN
  4. LIPITOR [Concomitant]
     Active Substance: ATORVASTATIN CALCIUM
  5. AMIODARONE [Concomitant]
     Active Substance: AMIODARONE
  6. IRESSA [Suspect]
     Active Substance: GEFITINIB
     Indication: ILL-DEFINED DISORDER
     Route: 048
     Dates: start: 20150903
  7. CALCIUM [Concomitant]
     Active Substance: CALCIUM
  8. SPIRIVA [Concomitant]
     Active Substance: TIOTROPIUM BROMIDE MONOHYDRATE
  9. ONDANSETRON [Concomitant]
     Active Substance: ONDANSETRON
  10. MECLIXZINE [Concomitant]
  11. ATIVAN [Concomitant]
     Active Substance: LORAZEPAM

REACTIONS (3)
  - Off label use [Unknown]
  - Death [Fatal]
  - Product use issue [Unknown]

NARRATIVE: CASE EVENT DATE: 20150903
